FAERS Safety Report 8749181 (Version 2)
Quarter: 2012Q4

REPORT INFORMATION
  Report Type: Spontaneous
  Country: US (occurrence: None)
  Receive Date: 20120802
  Receipt Date: 20120814
  Transmission Date: 20130627
  Serious: Yes (Other)
  Sender: FDA-Public Use
  Company Number: 2012SA052465

PATIENT
  Age: 55 Year
  Sex: Female
  Weight: 72.7 kg

DRUGS (4)
  1. MENTHOL [Suspect]
     Indication: PAIN
     Dates: start: 2007, end: 2009
  2. SOMA [Concomitant]
  3. NEURONTIN [Concomitant]
  4. OXYCONTIN [Concomitant]

REACTIONS (3)
  - Wound [None]
  - Chemical burn of skin [None]
  - Blister [None]
